FAERS Safety Report 16132786 (Version 1)
Quarter: 2019Q1

REPORT INFORMATION
  Report Type: Spontaneous
  Country: US (occurrence: US)
  Receive Date: 20190329
  Receipt Date: 20190329
  Transmission Date: 20190418
  Serious: No
  Sender: FDA-Public Use
  Company Number: US-PFIZER INC-2019119698

PATIENT
  Sex: Male

DRUGS (4)
  1. METFORMIN HCL [Suspect]
     Active Substance: METFORMIN HYDROCHLORIDE
     Indication: GESTATIONAL DIABETES
     Dosage: 2000 MG, DAILY
     Route: 064
  2. GLYNASE [Suspect]
     Active Substance: GLYBURIDE
     Dosage: 2.5 MG, 1X/DAY
     Route: 064
  3. GLYNASE [Suspect]
     Active Substance: GLYBURIDE
     Dosage: UNK
     Route: 064
  4. DHA [Concomitant]
     Active Substance: DIETARY SUPPLEMENT
     Indication: SUPPLEMENTATION THERAPY
     Dosage: 1 DF, UNK (250 1 TABLET ONCE A DAY BY MOUTH)
     Route: 064

REACTIONS (2)
  - Blood glucose decreased [Unknown]
  - Maternal exposure during pregnancy [Unknown]
